FAERS Safety Report 6013231-4 (Version None)
Quarter: 2008Q4

REPORT INFORMATION
  Report Type: 
  Country: None (occurrence: None)
  Receive Date: 20081219
  Receipt Date: 20081212
  Transmission Date: 20090506
  Serious: Yes (Life-Threatening, Hospitalization)
  Sender: FDA-Public Use
  Company Number: GB-TEVA-182442ISR

PATIENT
  Age: 46 Year
  Sex: Female
  Weight: 70 kg

DRUGS (1)
  1. AMITRIPTYLINE HCL [Suspect]
     Indication: HEADACHE
     Route: 048
     Dates: start: 20080604, end: 20081115

REACTIONS (1)
  - CARDIAC ARREST [None]
